FAERS Safety Report 20696194 (Version 2)
Quarter: 2022Q2

REPORT INFORMATION
  Report Type: Spontaneous
  Country: US (occurrence: US)
  Receive Date: 20220411
  Receipt Date: 20220511
  Transmission Date: 20220721
  Serious: No
  Sender: FDA-Public Use
  Company Number: US-GILEAD-2022-0576859

PATIENT
  Age: 37 Year
  Sex: Female
  Weight: 73.469 kg

DRUGS (5)
  1. HARVONI [Suspect]
     Active Substance: LEDIPASVIR\SOFOSBUVIR
     Indication: Chronic hepatitis C
     Dosage: 1 DOSAGE FORM
     Route: 048
     Dates: start: 20220301, end: 20220426
  2. METHADONE [Concomitant]
     Active Substance: METHADONE HYDROCHLORIDE
  3. APRI [Concomitant]
     Active Substance: DESOGESTREL\ETHINYL ESTRADIOL
  4. AMPHETAMINE [Concomitant]
     Active Substance: AMPHETAMINE
  5. DEXTROAMPHETAMINE [Concomitant]
     Active Substance: DEXTROAMPHETAMINE

REACTIONS (2)
  - Dysphonia [Recovered/Resolved]
  - Productive cough [Recovered/Resolved]

NARRATIVE: CASE EVENT DATE: 20220302
